FAERS Safety Report 15333512 (Version 1)
Quarter: 2018Q3

REPORT INFORMATION
  Report Type: Spontaneous
  Country: US (occurrence: US)
  Receive Date: 20180830
  Receipt Date: 20180830
  Transmission Date: 20181010
  Serious: No
  Sender: FDA-Public Use
  Company Number: US-JNJFOC-20180816836

PATIENT
  Age: 74 Year
  Sex: Female
  Weight: 67.13 kg

DRUGS (7)
  1. MAGNESIUM ASPARTATE W/POTASSIUM ASPARTATE [Concomitant]
     Indication: HYPOVITAMINOSIS
     Route: 065
  2. VITAMINE C [Concomitant]
     Active Substance: ASCORBIC ACID
     Indication: HYPOVITAMINOSIS
     Route: 065
  3. XARELTO [Suspect]
     Active Substance: RIVAROXABAN
     Indication: ATRIAL FIBRILLATION
     Route: 048
     Dates: start: 201302
  4. L?METHYLFOLATE [Concomitant]
     Active Substance: LEVOMEFOLIC ACID
     Indication: HYPOVITAMINOSIS
     Route: 065
  5. TURMERIC [Concomitant]
     Active Substance: HERBALS\TURMERIC
     Indication: HYPOVITAMINOSIS
     Route: 065
  6. ZINC. [Concomitant]
     Active Substance: ZINC
     Indication: HYPOVITAMINOSIS
     Route: 065
  7. XARELTO [Suspect]
     Active Substance: RIVAROXABAN
     Indication: CEREBROVASCULAR ACCIDENT PROPHYLAXIS
     Route: 048
     Dates: start: 201302

REACTIONS (1)
  - Low density lipoprotein increased [Not Recovered/Not Resolved]

NARRATIVE: CASE EVENT DATE: 20180803
